FAERS Safety Report 8310702-2 (Version None)
Quarter: 2012Q2

REPORT INFORMATION
  Report Type: 
  Country: None (occurrence: None)
  Receive Date: 20120425
  Receipt Date: 20120411
  Transmission Date: 20120825
  Serious: Yes (Other)
  Sender: FDA-Public Use
  Company Number: JP-ROCHE-1061069

PATIENT
  Age: 72 Year
  Sex: Male

DRUGS (5)
  1. RITUXIMAB [Suspect]
     Indication: LYMPHOMA
  2. VINCRISTINE SULFATE [Concomitant]
     Indication: LYMPHOMA
  3. CYCLOPHOSPHAMIDE [Concomitant]
     Indication: LYMPHOMA
  4. DOXORUBICIN HCL [Concomitant]
     Indication: LYMPHOMA
  5. PREDNISOLONE [Concomitant]
     Indication: LYMPHOMA

REACTIONS (1)
  - NECROTISING RETINITIS [None]
